FAERS Safety Report 12502785 (Version 1)
Quarter: 2016Q2

REPORT INFORMATION
  Report Type: Spontaneous
  Country: US (occurrence: US)
  Receive Date: 20160628
  Receipt Date: 20160628
  Transmission Date: 20160815
  Serious: No
  Sender: FDA-Public Use
  Company Number: US-BIOGEN-2016BI00254951

PATIENT
  Age: 64 Year
  Sex: Female

DRUGS (5)
  1. AVONEX [Suspect]
     Active Substance: INTERFERON BETA-1A
     Indication: MULTIPLE SCLEROSIS
     Route: 030
     Dates: start: 20150530
  2. AVONEX [Suspect]
     Active Substance: INTERFERON BETA-1A
     Dates: start: 20150530
  3. AVONEX [Suspect]
     Active Substance: INTERFERON BETA-1A
     Dates: start: 20150530
  4. AVONEX [Suspect]
     Active Substance: INTERFERON BETA-1A
     Dates: start: 20150530
  5. AVONEX [Suspect]
     Active Substance: INTERFERON BETA-1A
     Dates: start: 20150530

REACTIONS (3)
  - Malaise [Recovered/Resolved]
  - Tremor [Recovered/Resolved]
  - Stress [Recovered/Resolved]

NARRATIVE: CASE EVENT DATE: 20160604
